FAERS Safety Report 9685289 (Version 2)
Quarter: 2013Q4

REPORT INFORMATION
  Report Type: Spontaneous
  Country: JP (occurrence: JP)
  Receive Date: 20131113
  Receipt Date: 20131122
  Transmission Date: 20140711
  Serious: Yes (Other)
  Sender: FDA-Public Use
  Company Number: JP-JNJFOC-20131104758

PATIENT
  Age: 60 Year
  Sex: Female

DRUGS (4)
  1. DOXORUBICIN HYDROCHLORIDE (DOXIL) [Suspect]
     Indication: NEUROENDOCRINE CARCINOMA
     Route: 042
  2. DOXORUBICIN HYDROCHLORIDE [Suspect]
     Indication: NEUROENDOCRINE CARCINOMA
     Route: 042
  3. IRINOTECAN [Suspect]
     Indication: NEUROENDOCRINE CARCINOMA
     Route: 065
  4. CISPLATIN [Suspect]
     Indication: NEUROENDOCRINE CARCINOMA
     Route: 065

REACTIONS (3)
  - Laryngeal oedema [Unknown]
  - Asthma [Unknown]
  - Off label use [Unknown]
